FAERS Safety Report 6702299-5 (Version None)
Quarter: 2010Q2

REPORT INFORMATION
  Report Type: 
  Country: None (occurrence: None)
  Receive Date: 20100429
  Receipt Date: 20100427
  Transmission Date: 20101027
  Serious: Yes (Hospitalization)
  Sender: FDA-Public Use
  Company Number: CN-BRISTOL-MYERS SQUIBB COMPANY-15054331

PATIENT
  Age: 45 Year
  Sex: Male

DRUGS (7)
  1. ABATACEPT [Suspect]
     Indication: SYSTEMIC LUPUS ERYTHEMATOSUS
     Dosage: 1 DF=0.75 UNITS NOT SPECIFIED
     Route: 042
     Dates: start: 20090407, end: 20100407
  2. MYCOPHENOLATE MOFETIL [Suspect]
     Indication: SYSTEMIC LUPUS ERYTHEMATOSUS
     Dosage: 1 DF=1.5 UNITS NOT SPECIFIED
     Route: 048
     Dates: start: 20090407, end: 20100413
  3. PREDNISONE [Suspect]
     Indication: SYSTEMIC LUPUS ERYTHEMATOSUS
     Dosage: ALSO TAKEN AS CONMED FROM 22APR10:45MGQN
     Route: 048
     Dates: start: 20090213, end: 20100413
  4. BENAZEPRIL HYDROCHLORIDE [Concomitant]
     Route: 048
     Dates: start: 20090220
  5. NORVASC [Concomitant]
     Route: 048
     Dates: start: 20100112
  6. CALTRATE + D [Concomitant]
     Dosage: 1 DF=0.6 UNITS NOT SPECIFIED
     Route: 048
     Dates: start: 20090226
  7. OMEPRAZOLE [Concomitant]
     Route: 048
     Dates: start: 20100318

REACTIONS (1)
  - VENTRICULAR EXTRASYSTOLES [None]
